FAERS Safety Report 26076892 (Version 1)
Quarter: 2025Q4

REPORT INFORMATION
  Report Type: Spontaneous
  Country: US (occurrence: US)
  Receive Date: 20251121
  Receipt Date: 20251121
  Transmission Date: 20260118
  Serious: Yes (Other)
  Sender: GALDERMA
  Company Number: US-GALDERMA-US2025023686

PATIENT

DRUGS (2)
  1. NEMLUVIO [Suspect]
     Active Substance: NEMOLIZUMAB-ILTO
     Indication: Product used for unknown indication
     Dosage: UNK
     Route: 058
  2. DUPIXENT [Concomitant]
     Active Substance: DUPILUMAB
     Indication: Neurodermatitis
     Dosage: 300 MILLIGRAM/KILOGRAM, QOW
     Route: 058
     Dates: start: 20241224

REACTIONS (2)
  - Autoimmune disorder [Unknown]
  - Herpes zoster [Recovered/Resolved]

NARRATIVE: CASE EVENT DATE: 20250516
